FAERS Safety Report 11870180 (Version 1)
Quarter: 2015Q4

REPORT INFORMATION
  Report Type: Spontaneous
  Country: IL (occurrence: IL)
  Receive Date: 20151228
  Receipt Date: 20151228
  Transmission Date: 20160305
  Serious: Yes (Death, Other)
  Sender: FDA-Public Use
  Company Number: IL-ROCHE-1684103

PATIENT

DRUGS (1)
  1. SOMATROPIN [Suspect]
     Active Substance: SOMATROPIN
     Indication: GROWTH HORMONE DEFICIENCY
     Route: 065

REACTIONS (8)
  - Obesity [Unknown]
  - Nervous system disorder [Unknown]
  - Diabetes mellitus [Unknown]
  - Road traffic accident [Fatal]
  - Mental retardation [Unknown]
  - Cardiovascular disorder [Unknown]
  - Hyperlipidaemia [Unknown]
  - Visual impairment [Unknown]
